FAERS Safety Report 8257489-X (Version None)
Quarter: 2012Q2

REPORT INFORMATION
  Report Type: 
  Country: None (occurrence: None)
  Receive Date: 20120403
  Receipt Date: 20120313
  Transmission Date: 20120825
  Serious: Yes (Disabling)
  Sender: FDA-Public Use
  Company Number: PHHO2012DE004180

PATIENT
  Sex: Female
  Weight: 42 kg

DRUGS (6)
  1. PROGRAF [Suspect]
     Indication: ACUTE LYMPHOCYTIC LEUKAEMIA
  2. PANTHENOL [Concomitant]
     Indication: PROPHYLAXIS
     Dosage: 40 MG, QD
     Route: 048
  3. COTRIM DS [Concomitant]
     Indication: PROPHYLAXIS
     Dosage: 960 MG, UNK
     Route: 048
  4. ACYCLOVIR [Concomitant]
     Indication: PROPHYLAXIS
     Dosage: 40 MG, QD
     Route: 048
  5. IMATINIB MESYLATE [Suspect]
     Indication: ACUTE LYMPHOCYTIC LEUKAEMIA
     Dosage: 600 MG, UNK
     Dates: start: 20120102, end: 20120313
  6. LYRICA [Concomitant]
     Indication: POLYNEUROPATHY
     Dosage: 300 MG, QD
     Route: 048
     Dates: start: 20111229

REACTIONS (1)
  - OPTIC ATROPHY [None]
